FAERS Safety Report 21417823 (Version 4)
Quarter: 2022Q4

REPORT INFORMATION
  Report Type: Report from Study
  Country: US (occurrence: US)
  Receive Date: 20221006
  Receipt Date: 20221224
  Transmission Date: 20230113
  Serious: No
  Sender: FDA-Public Use
  Company Number: US-NOVARTISTESTPH-NVSC2022US225039

PATIENT
  Sex: Male

DRUGS (1)
  1. ENTRESTO [Suspect]
     Active Substance: SACUBITRIL\VALSARTAN
     Indication: Product used for unknown indication
     Dosage: UNK
     Route: 065

REACTIONS (7)
  - Hypoacusis [Unknown]
  - Weight decreased [Unknown]
  - Sensation of foreign body [Not Recovered/Not Resolved]
  - Throat clearing [Unknown]
  - Peripheral swelling [Unknown]
  - Dyspnoea [Unknown]
  - Depression [Unknown]
